FAERS Safety Report 8998580 (Version 2)
Quarter: 2016Q4

REPORT INFORMATION
  Report Type: Spontaneous
  Country: US (occurrence: US)
  Receive Date: 20130103
  Receipt Date: 20161230
  Transmission Date: 20170207
  Serious: Yes (Hospitalization, Other)
  Sender: FDA-Public Use
  Company Number: US-ASTRAZENECA-2012SE95236

PATIENT
  Age: 17909 Day
  Sex: Female
  Weight: 90.7 kg

DRUGS (9)
  1. INVOKANA [Concomitant]
     Active Substance: CANAGLIFLOZIN
     Indication: TYPE 2 DIABETES MELLITUS
     Dates: start: 2016
  2. CRESTOR [Suspect]
     Active Substance: ROSUVASTATIN CALCIUM
     Indication: BLOOD CHOLESTEROL INCREASED
     Route: 048
     Dates: start: 201209, end: 20121105
  3. SYNTHROID [Concomitant]
     Active Substance: LEVOTHYROXINE SODIUM
     Indication: HYPOTHYROIDISM
     Route: 048
     Dates: start: 2009
  4. METFORMIN HCL [Concomitant]
     Active Substance: METFORMIN HYDROCHLORIDE
     Indication: DIABETES MELLITUS
  5. MONTELUKAST [Concomitant]
     Active Substance: MONTELUKAST SODIUM
     Indication: HYPERSENSITIVITY
     Route: 048
  6. DIOVAN [Concomitant]
     Active Substance: VALSARTAN
     Indication: HYPERTENSION
  7. BYSTOLIC [Concomitant]
     Active Substance: NEBIVOLOL HYDROCHLORIDE
     Indication: BLOOD PRESSURE MEASUREMENT
  8. LEVOCETIRIZNE [Concomitant]
     Indication: HYPERSENSITIVITY
     Route: 048
  9. KOMBIGLYZE XR [Suspect]
     Active Substance: METFORMIN HYDROCHLORIDE\SAXAGLIPTIN HYDROCHLORIDE
     Indication: TYPE 2 DIABETES MELLITUS
     Dosage: 2.5MG 1000MG STRENGTH 2 PILLS DAILY
     Route: 048

REACTIONS (11)
  - Loss of consciousness [Recovered/Resolved]
  - Irritable bowel syndrome [Not Recovered/Not Resolved]
  - Myalgia [Recovering/Resolving]
  - Haematoma [Recovered/Resolved]
  - Myalgia [Recovering/Resolving]
  - Limb discomfort [Recovering/Resolving]
  - Endometrial cancer [Recovering/Resolving]
  - Muscular weakness [Recovering/Resolving]
  - Haemorrhage [Recovered/Resolved]
  - Pain in extremity [Recovering/Resolving]
  - Intentional product misuse [Unknown]

NARRATIVE: CASE EVENT DATE: 20121105
